FAERS Safety Report 21610032 (Version 1)
Quarter: 2022Q4

REPORT INFORMATION
  Report Type: Spontaneous
  Country: US (occurrence: None)
  Receive Date: 20221117
  Receipt Date: 20221117
  Transmission Date: 20230113
  Serious: No
  Sender: FDA-Public Use
  Company Number: 2022A338440

PATIENT
  Age: 64 Year
  Sex: Male
  Weight: 97.5 kg

DRUGS (4)
  1. PULMICORT FLEXHALER [Suspect]
     Active Substance: BUDESONIDE
     Indication: Pneumonia
     Dosage: 2 PUFFS
     Route: 055
     Dates: start: 20220923
  2. PULMICORT FLEXHALER [Suspect]
     Active Substance: BUDESONIDE
     Indication: Chest discomfort
     Dosage: 2 PUFFS
     Route: 055
     Dates: start: 20220923
  3. PULMICORT FLEXHALER [Suspect]
     Active Substance: BUDESONIDE
     Indication: Pneumonia
     Route: 055
     Dates: start: 20220930
  4. PULMICORT FLEXHALER [Suspect]
     Active Substance: BUDESONIDE
     Indication: Chest discomfort
     Route: 055
     Dates: start: 20220930

REACTIONS (3)
  - Chest discomfort [Recovering/Resolving]
  - Drug delivery system issue [Not Recovered/Not Resolved]
  - Product use issue [Not Recovered/Not Resolved]

NARRATIVE: CASE EVENT DATE: 20220714
